FAERS Safety Report 8999540 (Version 1)
Quarter: 2013Q1

REPORT INFORMATION
  Report Type: Spontaneous
  Country: US (occurrence: US)
  Receive Date: 20130103
  Receipt Date: 20130103
  Transmission Date: 20140127
  Serious: Yes (Hospitalization)
  Sender: FDA-Public Use
  Company Number: US-GILEAD-2012-0067117

PATIENT
  Sex: Male

DRUGS (2)
  1. LETAIRIS [Suspect]
     Indication: PULMONARY HYPERTENSION
     Dosage: 10 MG, UNK
     Route: 048
     Dates: start: 20121031
  2. LETAIRIS [Suspect]
     Dosage: 5 UNK, UNK
     Route: 048
     Dates: start: 2012

REACTIONS (3)
  - Pulmonary hypertension [Unknown]
  - Unevaluable event [Unknown]
  - Dyspnoea [Unknown]
